FAERS Safety Report 10203552 (Version 2)
Quarter: 2014Q2

REPORT INFORMATION
  Report Type: Spontaneous
  Country: US (occurrence: US)
  Receive Date: 20140529
  Receipt Date: 20140529
  Transmission Date: 20141212
  Serious: Yes (Other)
  Sender: FDA-Public Use
  Company Number: US-JNJFOC-20140304916

PATIENT
  Age: 63 Year
  Sex: Female

DRUGS (12)
  1. XARELTO [Suspect]
     Indication: CEREBROVASCULAR ACCIDENT PROPHYLAXIS
     Route: 048
  2. XARELTO [Suspect]
     Indication: CEREBROVASCULAR ACCIDENT PROPHYLAXIS
     Route: 048
     Dates: start: 20131220, end: 20140304
  3. XARELTO [Suspect]
     Indication: ATRIAL FIBRILLATION
     Route: 048
  4. XARELTO [Suspect]
     Indication: ATRIAL FIBRILLATION
     Route: 048
     Dates: start: 20131220, end: 20140304
  5. ATORVASTATIN [Concomitant]
     Route: 065
  6. CYMBALTA [Concomitant]
     Route: 065
  7. DILTIAZEM [Concomitant]
     Route: 065
  8. POTASSIUM [Concomitant]
     Route: 065
  9. LASIX [Concomitant]
     Route: 065
  10. LEVOTHYROXINE [Concomitant]
     Route: 065
  11. METFORMIN [Concomitant]
     Route: 065
  12. METOPROLOL [Concomitant]
     Route: 065

REACTIONS (3)
  - Haematuria [Recovered/Resolved]
  - Nephrolithiasis [Recovering/Resolving]
  - Muscle spasms [Recovering/Resolving]
